FAERS Safety Report 4306412-9 (Version None)
Quarter: 2004Q1

REPORT INFORMATION
  Report Type: 
  Country: None (occurrence: None)
  Receive Date: 20040225
  Receipt Date: 20030707
  Transmission Date: 20041129
  Serious: No
  Sender: FDA-Public Use
  Company Number: US-BRISTOL-MYERS SQUIBB COMPANY-12321980

PATIENT
  Age: 35 Year
  Sex: Female
  Weight: 73 kg

DRUGS (1)
  1. EXCEDRIN ES TABS [Suspect]
     Indication: MIGRAINE
     Dosage: FREQUENCY: INFREQUENTLY
     Route: 048
     Dates: start: 20030704

REACTIONS (2)
  - ERUCTATION [None]
  - NERVOUSNESS [None]
